FAERS Safety Report 15794956 (Version 2)
Quarter: 2019Q1

REPORT INFORMATION
  Report Type: Spontaneous
  Country: US (occurrence: US)
  Receive Date: 20190107
  Receipt Date: 20190216
  Transmission Date: 20190417
  Serious: No
  Sender: FDA-Public Use
  Company Number: US-ELI_LILLY_AND_COMPANY-US201901002371

PATIENT
  Sex: Male

DRUGS (2)
  1. TALTZ [Suspect]
     Active Substance: IXEKIZUMAB
     Dosage: UNKNOWN DOSE AND FREQUENCY
     Route: 065
  2. TALTZ [Suspect]
     Active Substance: IXEKIZUMAB
     Indication: PRODUCT USED FOR UNKNOWN INDICATION
     Dosage: 160 MG, TWO DOSES OF 80 MG EACH
     Route: 065
     Dates: start: 20180811

REACTIONS (2)
  - Anxiety [Not Recovered/Not Resolved]
  - Constipation [Not Recovered/Not Resolved]
